FAERS Safety Report 24300230 (Version 1)
Quarter: 2024Q3

REPORT INFORMATION
  Report Type: Report from Study
  Country: PA (occurrence: PA)
  Receive Date: 20240909
  Receipt Date: 20240909
  Transmission Date: 20241017
  Serious: Yes (Hospitalization, Disabling, Other)
  Sender: BRISTOL MYERS SQUIBB
  Company Number: PA-BRISTOL-MYERS SQUIBB COMPANY-2024-142560

PATIENT
  Age: 58 Year
  Sex: Male
  Weight: 97 kg

DRUGS (2)
  1. OPDIVO [Suspect]
     Active Substance: NIVOLUMAB
     Indication: Metastatic malignant melanoma
     Dosage: 97 MG/ML, EVERY 21 DAYS
     Route: 042
     Dates: start: 20240613
  2. YERVOY [Suspect]
     Active Substance: IPILIMUMAB
     Indication: Metastatic malignant melanoma
     Dosage: 291 MG/ML, EVERY 21 DAYS
     Route: 042
     Dates: start: 20240613

REACTIONS (3)
  - Malignant neoplasm progression [Not Recovered/Not Resolved]
  - Hypophysitis [Recovering/Resolving]
  - Gait inability [Recovering/Resolving]
